FAERS Safety Report 21666696 (Version 1)
Quarter: 2022Q4

REPORT INFORMATION
  Report Type: Spontaneous
  Country: CA (occurrence: CA)
  Receive Date: 20221201
  Receipt Date: 20221201
  Transmission Date: 20230112
  Serious: Yes (Hospitalization)
  Sender: FDA-Public Use
  Company Number: CA-TEVA-2022-CA-2831687

PATIENT
  Age: 40 Year
  Sex: Male

DRUGS (1)
  1. IBUPROFEN [Suspect]
     Active Substance: IBUPROFEN
     Indication: Product used for unknown indication
     Route: 065

REACTIONS (6)
  - Anaemia [Unknown]
  - Anastomotic ulcer haemorrhage [Unknown]
  - Haematemesis [Unknown]
  - Haemodynamic instability [Unknown]
  - Melaena [Unknown]
  - Haemoglobin abnormal [Unknown]
